FAERS Safety Report 7265739-1 (Version None)
Quarter: 2011Q1

REPORT INFORMATION
  Report Type: 
  Country: None (occurrence: None)
  Receive Date: 20110131
  Receipt Date: 20110118
  Transmission Date: 20110831
  Serious: Yes (Hospitalization, Other)
  Sender: FDA-Public Use
  Company Number: US-ELI_LILLY_AND_COMPANY-US201011002742

PATIENT
  Age: 67 Year
  Sex: Male
  Weight: 93.651 kg

DRUGS (7)
  1. ANTIHYPERTENSIVES [Concomitant]
  2. ASA [Concomitant]
     Dosage: 325 MG, DAILY (1/D)
  3. NITROGLYCERIN [Concomitant]
     Dosage: 1 D/F, AS NEEDED
     Route: 060
  4. FLOMAX [Concomitant]
     Dosage: 0.4 MG, EACH EVENING
  5. EFFIENT [Suspect]
     Dosage: 10 MG, DAILY (1/D)
     Route: 048
  6. METOPROLOL TARTRATE [Concomitant]
     Dosage: 25 MG, 2/D
  7. EFFIENT [Suspect]
     Indication: THROMBOSIS PROPHYLAXIS
     Dosage: 60 MG, INITIAL LOADING DOSE
     Route: 065
     Dates: start: 20101013

REACTIONS (9)
  - FATIGUE [None]
  - TRISMUS [None]
  - JAW CYST [None]
  - ASTHENIA [None]
  - CHEST PAIN [None]
  - ACUTE CORONARY SYNDROME [None]
  - JOINT CREPITATION [None]
  - HEADACHE [None]
  - PAIN IN JAW [None]
